FAERS Safety Report 4448218-6 (Version None)
Quarter: 2004Q3

REPORT INFORMATION
  Report Type: 
  Country: None (occurrence: None)
  Receive Date: 20040913
  Receipt Date: 20031120
  Transmission Date: 20050211
  Serious: Yes (Hospitalization)
  Sender: FDA-Public Use
  Company Number: PHHO2003US15043

PATIENT
  Age: 57 Year
  Sex: Male
  Weight: 124 kg

DRUGS (15)
  1. ERL 080A [Suspect]
     Indication: RENAL TRANSPLANT
     Dosage: 2 TABS BID
     Route: 048
     Dates: start: 20010126
  2. NEORAL [Suspect]
     Indication: RENAL TRANSPLANT
     Dosage: 75 MG, BID
     Route: 048
     Dates: start: 20030124
  3. PREDNISONE [Suspect]
     Indication: RENAL TRANSPLANT
     Dosage: 10 MG, QD
     Route: 048
     Dates: start: 20000803, end: 20010726
  4. PREDNISONE [Suspect]
     Dosage: 7.5 MG, QD
     Route: 048
     Dates: start: 20010727
  5. METOPROLOL [Concomitant]
  6. PREVACID [Concomitant]
  7. ASPIRIN [Concomitant]
  8. NORVASC [Concomitant]
  9. ALLEGRA [Concomitant]
  10. LIPITOR [Concomitant]
  11. CALCIUM CARBONATE [Concomitant]
  12. MULTI-VITAMINS [Concomitant]
  13. FLONASE [Concomitant]
  14. NPH INSULIN [Concomitant]
  15. AMLODIPINE [Concomitant]

REACTIONS (12)
  - DISEASE PROGRESSION [None]
  - ENTEROCOCCAL INFECTION [None]
  - ERYTHEMA [None]
  - FOOT FRACTURE [None]
  - INFECTED SKIN ULCER [None]
  - NEUROPATHIC ULCER [None]
  - OSTEOMYELITIS [None]
  - PAIN IN EXTREMITY [None]
  - SKIN ULCER [None]
  - STAPHYLOCOCCAL INFECTION [None]
  - SWELLING [None]
  - TOE AMPUTATION [None]
